FAERS Safety Report 24126787 (Version 1)
Quarter: 2024Q3

REPORT INFORMATION
  Report Type: Spontaneous
  Country: US (occurrence: None)
  Receive Date: 20240722
  Receipt Date: 20240722
  Transmission Date: 20241016
  Serious: Yes (Hospitalization)
  Sender: Public
  Company Number: None

PATIENT
  Age: 27 Year
  Sex: Male
  Weight: 82.8 kg

DRUGS (11)
  1. CABENUVA [Suspect]
     Active Substance: CABOTEGRAVIR\RILPIVIRINE
     Indication: HIV infection
     Dosage: 3 ML EVERY 2 MONTHS INTRAMUSCULAR?
     Route: 030
     Dates: start: 20230406, end: 20240408
  2. ATOMOXETINE [Concomitant]
     Active Substance: ATOMOXETINE HYDROCHLORIDE
     Dates: start: 20240524
  3. Invega Sustenna 234mg/1.5ml [Concomitant]
     Dates: start: 20240613
  4. divalproex sodium 500mg DR [Concomitant]
     Dates: start: 20240402
  5. VALACYCLOVIR [Concomitant]
     Active Substance: VALACYCLOVIR HYDROCHLORIDE
     Dates: start: 20210420
  6. nicotine gum 2mg [Concomitant]
  7. paliperidone 6mg ER [Concomitant]
     Dates: start: 20240613
  8. haloperidol deconoate 100mg/ml [Concomitant]
     Dates: start: 20240229, end: 20240613
  9. HALOPERIDOL [Concomitant]
     Active Substance: HALOPERIDOL
     Dates: start: 20240229, end: 20240613
  10. OLANZAPINE [Concomitant]
     Active Substance: OLANZAPINE
     Dates: start: 20220203, end: 20231213
  11. CLONIDINE HYDROCHLORIDE [Concomitant]
     Active Substance: CLONIDINE HYDROCHLORIDE
     Dates: start: 20230208, end: 20231213

REACTIONS (7)
  - Suicidal ideation [None]
  - Acute psychosis [None]
  - Depression [None]
  - Hallucination, auditory [None]
  - Hallucination, visual [None]
  - Anxiety [None]
  - Overdose [None]
